FAERS Safety Report 6193020-0 (Version None)
Quarter: 2009Q2

REPORT INFORMATION
  Report Type: 
  Country: None (occurrence: None)
  Receive Date: 20090518
  Receipt Date: 20090504
  Transmission Date: 20091009
  Serious: No
  Sender: FDA-Public Use
  Company Number: US-BAYER-200919916NA

PATIENT
  Age: 32 Year
  Sex: Female

DRUGS (1)
  1. MIRENA [Suspect]
     Indication: CONTRACEPTION
     Route: 015
     Dates: start: 20090201

REACTIONS (10)
  - ABDOMINAL PAIN LOWER [None]
  - AMENORRHOEA [None]
  - BACK PAIN [None]
  - CHEST PAIN [None]
  - FATIGUE [None]
  - HUNGER [None]
  - MIGRAINE [None]
  - MOTION SICKNESS [None]
  - NAUSEA [None]
  - SOMNOLENCE [None]
